FAERS Safety Report 23969679 (Version 1)
Quarter: 2024Q2

REPORT INFORMATION
  Report Type: Spontaneous
  Country: US (occurrence: US)
  Receive Date: 20240613
  Receipt Date: 20240613
  Transmission Date: 20240716
  Serious: No
  Sender: FDA-Public Use
  Company Number: US-SANDOZ-SDZ2024US057078

PATIENT
  Sex: Male

DRUGS (3)
  1. HYDROCORTISONE [Suspect]
     Active Substance: HYDROCORTISONE\HYDROCORTISONE ACETATE
     Indication: Psoriasis
     Dosage: 2.5 %, QD
     Route: 061
  2. OMEPRAZOLE [Suspect]
     Active Substance: DONEPEZIL HYDROCHLORIDE\OMEPRAZOLE\OMEPRAZOLE MAGNESIUM
     Indication: Psoriasis
     Dosage: 20 MG/KG, QD
     Route: 048
  3. TRIAMCINOLONE ACETONIDE [Suspect]
     Active Substance: TRIAMCINOLONE ACETONIDE
     Indication: Psoriasis
     Dosage: 0.1 %, QD
     Route: 061

REACTIONS (3)
  - Psoriasis [Unknown]
  - Post inflammatory pigmentation change [Unknown]
  - Arthralgia [Unknown]
